FAERS Safety Report 6430800-8 (Version None)
Quarter: 2009Q4

REPORT INFORMATION
  Report Type: 
  Country: None (occurrence: None)
  Receive Date: 20091105
  Receipt Date: 20091105
  Transmission Date: 20100525
  Serious: No
  Sender: FDA-Public Use
  Company Number: None

PATIENT
  Age: 25 Year
  Sex: Female
  Weight: 68.0396 kg

DRUGS (1)
  1. MIRENA [Suspect]
     Indication: CONTRACEPTION
     Dosage: ONCE UPON INSERTION UP TO 5 YEARS, INTRA-UTERI
     Route: 015
     Dates: start: 20090131, end: 20090810

REACTIONS (20)
  - ABDOMINAL DISTENSION [None]
  - ACNE [None]
  - ALOPECIA [None]
  - ANXIETY [None]
  - BACK PAIN [None]
  - CERVIX INFLAMMATION [None]
  - DEPRESSION [None]
  - DYSPAREUNIA [None]
  - ECZEMA [None]
  - HAIR GROWTH ABNORMAL [None]
  - HYPERTENSION [None]
  - MIGRAINE [None]
  - MOOD SWINGS [None]
  - NERVOUSNESS [None]
  - OEDEMA PERIPHERAL [None]
  - PRURITUS [None]
  - RASH [None]
  - URTICARIA [None]
  - VAGINAL INFLAMMATION [None]
  - WEIGHT INCREASED [None]
